FAERS Safety Report 19829497 (Version 1)
Quarter: 2021Q3

REPORT INFORMATION
  Report Type: Spontaneous
  Country: US (occurrence: US)
  Receive Date: 20210913
  Receipt Date: 20210913
  Transmission Date: 20211014
  Serious: No
  Sender: FDA-Public Use
  Company Number: None

PATIENT
  Age: 72 Year
  Sex: Male
  Weight: 58.23 kg

DRUGS (1)
  1. IOPAMIDOL (IOPAMIDOL 261MG/ML INJ) [Suspect]
     Active Substance: IOPAMIDOL
     Dates: start: 20210823, end: 20210823

REACTIONS (5)
  - Anaphylactic reaction [None]
  - Respiratory depression [None]
  - Acute pulmonary oedema [None]
  - Contrast media reaction [None]
  - Cardio-respiratory arrest [None]

NARRATIVE: CASE EVENT DATE: 20210823
